FAERS Safety Report 8144029-9 (Version None)
Quarter: 2012Q1

REPORT INFORMATION
  Report Type: 
  Country: None (occurrence: None)
  Receive Date: 20120217
  Receipt Date: 20120217
  Transmission Date: 20120608
  Serious: Yes (Other)
  Sender: FDA-Public Use
  Company Number: None

PATIENT
  Age: 34 Year
  Sex: Female
  Weight: 113.39 kg

DRUGS (1)
  1. AFRIN [Suspect]
     Indication: NASAL CONGESTION
     Dosage: 2 SPRAYS EACH NOSTRIL
     Route: 045
     Dates: start: 20120214, end: 20120215

REACTIONS (3)
  - FEAR [None]
  - AGEUSIA [None]
  - ANOSMIA [None]
